FAERS Safety Report 9428597 (Version 1)
Quarter: 2013Q3

REPORT INFORMATION
  Report Type: Report from Study
  Country: US (occurrence: US)
  Receive Date: 20130730
  Receipt Date: 20130730
  Transmission Date: 20140515
  Serious: No
  Sender: FDA-Public Use
  Company Number: US-ABBOTT-12P-163-1019472-00

PATIENT
  Sex: 0
  Weight: 86.26 kg

DRUGS (4)
  1. NIASPAN (COATED) [Suspect]
     Indication: PRODUCT USED FOR UNKNOWN INDICATION
     Dosage: 2 TABLETS AT BEDTIME
     Dates: end: 20121113
  2. NIASPAN (COATED) [Suspect]
     Dosage: 2 TABLETS AT BEDTIME
     Dates: start: 20121204
  3. ASA [Concomitant]
     Indication: PRODUCT USED FOR UNKNOWN INDICATION
  4. DRUG FOR HYPERTENSION [Concomitant]
     Indication: HYPERTENSION

REACTIONS (2)
  - Hot flush [Not Recovered/Not Resolved]
  - Skin burning sensation [Not Recovered/Not Resolved]
